FAERS Safety Report 5363668-1 (Version None)
Quarter: 2007Q2

REPORT INFORMATION
  Report Type: 
  Country: None (occurrence: None)
  Receive Date: 20070618
  Receipt Date: 20070618
  Transmission Date: 20071010
  Serious: Yes (Hospitalization)
  Sender: FDA-Public Use
  Company Number: None

PATIENT
  Age: 55 Year
  Sex: Female
  Weight: 99 kg

DRUGS (21)
  1. ULTRAM [Suspect]
     Indication: BACK PAIN
     Dosage: 50MG PRN PO
     Route: 048
     Dates: start: 20070612, end: 20070612
  2. INDINAVIR [Concomitant]
  3. NASONEX [Concomitant]
  4. ADVAIR DISKUS 100/50 [Concomitant]
  5. NEURONTIN [Concomitant]
  6. ZYPREXA [Concomitant]
  7. COREG [Concomitant]
  8. MEGACE [Concomitant]
  9. CLONIDINE [Concomitant]
  10. HYDRALAZINE HCL [Concomitant]
  11. ZIDOVUDINE [Concomitant]
  12. LAMIVUDINE [Concomitant]
  13. COUMADIN [Concomitant]
  14. DOXEPIN HCL [Concomitant]
  15. ALBUTEROL [Concomitant]
  16. LORTAB [Concomitant]
  17. LOVENOX [Concomitant]
  18. AVANDIA [Concomitant]
  19. LOTREL [Concomitant]
  20. INSULIN [Concomitant]
  21. ALTACE [Concomitant]

REACTIONS (2)
  - CONFUSIONAL STATE [None]
  - MUSCLE RIGIDITY [None]
